FAERS Safety Report 8564554-6 (Version None)
Quarter: 2012Q3

REPORT INFORMATION
  Report Type: 
  Country: None (occurrence: None)
  Receive Date: 20120727
  Receipt Date: 20120727
  Transmission Date: 20120928
  Serious: Yes (Life-Threatening)
  Sender: FDA-Public Use
  Company Number: None

PATIENT
  Age: 48 Year
  Sex: Male
  Weight: 74.8435 kg

DRUGS (1)
  1. INTELENCE [Suspect]
     Indication: HIV INFECTION
     Dosage: 200 MG, 2X/DAY PO
     Route: 048

REACTIONS (4)
  - PAIN [None]
  - RETCHING [None]
  - FOREIGN BODY [None]
  - PRODUCT SOLUBILITY ABNORMAL [None]
